FAERS Safety Report 24282982 (Version 1)
Quarter: 2024Q3

REPORT INFORMATION
  Report Type: Spontaneous
  Country: US (occurrence: US)
  Receive Date: 20240904
  Receipt Date: 20240904
  Transmission Date: 20241016
  Serious: No
  Sender: PFIZER
  Company Number: US-PFIZER INC-202400249744

PATIENT
  Age: 58 Year
  Sex: Female

DRUGS (4)
  1. PAXLOVID [Suspect]
     Active Substance: NIRMATRELVIR\RITONAVIR
     Indication: COVID-19 treatment
     Dosage: UNK
     Dates: start: 20240822, end: 20240826
  2. METHOTREXATE [Concomitant]
     Active Substance: METHOTREXATE
  3. TALTZ [Concomitant]
     Active Substance: IXEKIZUMAB
     Dosage: UNK
  4. TALTZ [Concomitant]
     Active Substance: IXEKIZUMAB
     Dosage: UNK
     Dates: start: 20240829

REACTIONS (2)
  - COVID-19 [Recovering/Resolving]
  - Disease recurrence [Recovering/Resolving]

NARRATIVE: CASE EVENT DATE: 20240902
